FAERS Safety Report 7030868-4 (Version None)
Quarter: 2010Q4

REPORT INFORMATION
  Report Type: 
  Country: None (occurrence: None)
  Receive Date: 20101006
  Receipt Date: 20100927
  Transmission Date: 20110411
  Serious: Yes (Hospitalization)
  Sender: FDA-Public Use
  Company Number: US-ABBOTT-10P-163-0673558-00

PATIENT
  Sex: Female
  Weight: 83.99 kg

DRUGS (6)
  1. HUMIRA [Suspect]
     Indication: RHEUMATOID ARTHRITIS
     Route: 058
     Dates: start: 20020101
  2. HUMIRA [Suspect]
     Indication: PSORIATIC ARTHROPATHY
  3. CORTISONE [Suspect]
     Indication: PRODUCT USED FOR UNKNOWN INDICATION
     Route: 014
     Dates: start: 20091001, end: 20091001
  4. HYDROCHLOROTHIAZIDE [Concomitant]
     Indication: PRODUCT USED FOR UNKNOWN INDICATION
  5. DIOVAN [Concomitant]
     Indication: PRODUCT USED FOR UNKNOWN INDICATION
  6. SIMVASTATIN [Concomitant]
     Indication: PRODUCT USED FOR UNKNOWN INDICATION

REACTIONS (4)
  - CEREBRAL HAEMORRHAGE [None]
  - HEADACHE [None]
  - MUSCULOSKELETAL PAIN [None]
  - RED BLOOD CELLS CSF POSITIVE [None]
